FAERS Safety Report 5748911-9 (Version None)
Quarter: 2008Q2

REPORT INFORMATION
  Report Type: 
  Country: None (occurrence: None)
  Receive Date: 20080525
  Receipt Date: 20080521
  Transmission Date: 20081010
  Serious: Yes (Other)
  Sender: FDA-Public Use
  Company Number: JP-RANBAXY-2008RR-15303

PATIENT

DRUGS (2)
  1. PRAVASTATIN [Suspect]
     Dosage: 10 MG, QD
  2. ATORVASTATIN CALCIUM [Concomitant]
     Indication: HYPERCHOLESTEROLAEMIA

REACTIONS (1)
  - POLYMYOSITIS [None]
